FAERS Safety Report 21489111 (Version 1)
Quarter: 2022Q4

REPORT INFORMATION
  Report Type: Report from Study
  Country: DE (occurrence: DE)
  Receive Date: 20221021
  Receipt Date: 20221021
  Transmission Date: 20230113
  Serious: Yes (Hospitalization)
  Sender: FDA-Public Use
  Company Number: DE-BIOGEN-2016BI00241138

PATIENT
  Age: 48 Year
  Sex: Female
  Weight: 80 kg

DRUGS (6)
  1. TECFIDERA [Suspect]
     Active Substance: DIMETHYL FUMARATE
     Indication: Multiple sclerosis
     Route: 050
     Dates: start: 201604
  2. TECFIDERA [Suspect]
     Active Substance: DIMETHYL FUMARATE
     Route: 050
     Dates: start: 20160427
  3. TECFIDERA [Suspect]
     Active Substance: DIMETHYL FUMARATE
     Route: 050
  4. CANDESARTAN [Concomitant]
     Active Substance: CANDESARTAN
     Indication: Hypertension
     Route: 050
  5. DESOGESTREL [Concomitant]
     Active Substance: DESOGESTREL
     Indication: Menopause
     Route: 050
     Dates: start: 2011
  6. CALCIUM [Concomitant]
     Active Substance: CALCIUM
     Indication: Steroid therapy
     Route: 050
     Dates: start: 20160517

REACTIONS (5)
  - Multiple sclerosis relapse [Not Recovered/Not Resolved]
  - Malaise [Unknown]
  - Sleep disorder [Unknown]
  - Paraesthesia [Unknown]
  - Balance disorder [Recovered/Resolved]

NARRATIVE: CASE EVENT DATE: 20160515
